FAERS Safety Report 19920667 (Version 1)
Quarter: 2021Q4

REPORT INFORMATION
  Report Type: Spontaneous
  Country: US (occurrence: US)
  Receive Date: 20211006
  Receipt Date: 20211006
  Transmission Date: 20220303
  Serious: Yes (Other)
  Sender: FDA-Public Use
  Company Number: US-AMGEN-USASP2021150832

PATIENT
  Sex: Male
  Weight: 167.8 kg

DRUGS (2)
  1. OTEZLA [Suspect]
     Active Substance: APREMILAST
     Indication: Product used for unknown indication
     Dosage: UNK
     Route: 065
  2. HUMIRA [Suspect]
     Active Substance: ADALIMUMAB
     Indication: Psoriasis
     Dosage: UNK
     Route: 058

REACTIONS (6)
  - Adverse drug reaction [Recovering/Resolving]
  - Weight decreased [Unknown]
  - Spinal cord compression [Not Recovered/Not Resolved]
  - Back disorder [Not Recovered/Not Resolved]
  - Overweight [Recovering/Resolving]
  - Peripheral swelling [Recovering/Resolving]
